FAERS Safety Report 5285363-X (Version None)
Quarter: 2007Q2

REPORT INFORMATION
  Report Type: 
  Country: None (occurrence: None)
  Receive Date: 20070403
  Receipt Date: 20070321
  Transmission Date: 20071010
  Serious: Yes (Hospitalization)
  Sender: FDA-Public Use
  Company Number: US-SHR-US-2007-003238

PATIENT
  Age: 67 Year
  Sex: Female
  Weight: 70 kg

DRUGS (2)
  1. MAGNEVIST [Suspect]
     Dosage: 25 ML, 1 DOSE
     Route: 042
     Dates: start: 20070125, end: 20070125
  2. ANTINEOPLASTIC AGENTS [Concomitant]
     Dates: start: 20070101

REACTIONS (5)
  - DYSURIA [None]
  - ERYTHEMA [None]
  - EYE SWELLING [None]
  - SWELLING FACE [None]
  - URTICARIA [None]
